FAERS Safety Report 9626818 (Version 1)
Quarter: 2013Q4

REPORT INFORMATION
  Report Type: Spontaneous
  Country: US (occurrence: US)
  Receive Date: 20131016
  Receipt Date: 20131016
  Transmission Date: 20140711
  Serious: Yes (Hospitalization)
  Sender: FDA-Public Use
  Company Number: US-PFIZER INC-2013292860

PATIENT
  Age: 40 Year
  Sex: Female

DRUGS (2)
  1. PHENYTOIN [Suspect]
     Indication: CONVULSION
     Dosage: UNK
  2. PHENYTOIN [Suspect]
     Dosage: 300 MG, DAILY

REACTIONS (8)
  - Intentional drug misuse [Recovered/Resolved]
  - Toxicity to various agents [Recovered/Resolved]
  - Anticonvulsant drug level increased [Recovered/Resolved]
  - Choreoathetosis [Recovered/Resolved]
  - Agitation [Recovered/Resolved]
  - Confusional state [Recovered/Resolved]
  - Dysarthria [Recovered/Resolved]
  - Nystagmus [Recovered/Resolved]
